FAERS Safety Report 4859988-7 (Version None)
Quarter: 2005Q4

REPORT INFORMATION
  Report Type: 
  Country: None (occurrence: None)
  Receive Date: 20051219
  Receipt Date: 20050217
  Transmission Date: 20060501
  Serious: Yes (Hospitalization)
  Sender: FDA-Public Use
  Company Number: US-MERCK-0502USA02667

PATIENT
  Age: 48 Year
  Sex: Male
  Weight: 89 kg

DRUGS (2)
  1. VIOXX [Suspect]
     Indication: BACK INJURY
     Route: 048
     Dates: start: 20000404, end: 20030904
  2. VIOXX [Suspect]
     Indication: NECK INJURY
     Route: 048
     Dates: start: 20000404, end: 20030904

REACTIONS (2)
  - ATRIAL FIBRILLATION [None]
  - CHEST PAIN [None]
